FAERS Safety Report 4478584-7 (Version None)
Quarter: 2004Q4

REPORT INFORMATION
  Report Type: 
  Country: None (occurrence: None)
  Receive Date: 20041019
  Receipt Date: 20041012
  Transmission Date: 20050328
  Serious: Yes (Other)
  Sender: FDA-Public Use
  Company Number: PHEH2004US10971

PATIENT
  Age: 73 Year
  Sex: Female

DRUGS (2)
  1. DIOVAN [Suspect]
     Dosage: 80 MG, QD
     Route: 048
     Dates: start: 20040501, end: 20040513
  2. PREVACID [Concomitant]

REACTIONS (2)
  - HEART RATE INCREASED [None]
  - HEART RATE IRREGULAR [None]
